FAERS Safety Report 7866668-2 (Version None)
Quarter: 2011Q4

REPORT INFORMATION
  Report Type: 
  Country: None (occurrence: None)
  Receive Date: 20111028
  Receipt Date: 20110722
  Transmission Date: 20120403
  Serious: No
  Sender: FDA-Public Use
  Company Number: US-GLAXOSMITHKLINE-A0938028A

PATIENT
  Age: 72 Year
  Sex: Male

DRUGS (16)
  1. JANUVIA [Concomitant]
  2. MIRAPEX [Concomitant]
  3. PLETAL [Concomitant]
  4. LEFLUNOMIDE [Concomitant]
  5. METHOTREXATE [Concomitant]
  6. NIASPAN [Concomitant]
  7. FORTAMET [Concomitant]
  8. LIPITOR [Concomitant]
  9. ALTACE [Concomitant]
  10. ADVAIR DISKUS 100/50 [Suspect]
     Indication: CHRONIC OBSTRUCTIVE PULMONARY DISEASE
     Route: 055
     Dates: start: 20110706
  11. SATOLOL [Concomitant]
  12. PROAIR HFA [Concomitant]
  13. SPIRIVA [Concomitant]
  14. COREG [Concomitant]
  15. COUMADIN [Concomitant]
  16. NEXIUM [Concomitant]

REACTIONS (6)
  - OROPHARYNGEAL DISCOMFORT [None]
  - THERMAL BURN [None]
  - CANDIDIASIS [None]
  - ORAL PAIN [None]
  - ORAL DISCOMFORT [None]
  - ODYNOPHAGIA [None]
